FAERS Safety Report 18294283 (Version 1)
Quarter: 2020Q3

REPORT INFORMATION
  Report Type: Spontaneous
  Country: US (occurrence: US)
  Receive Date: 20200921
  Receipt Date: 20200921
  Transmission Date: 20201103
  Serious: No
  Sender: FDA-Public Use
  Company Number: None

PATIENT
  Age: 57 Year
  Sex: Female

DRUGS (1)
  1. ORENCIA [Suspect]
     Active Substance: ABATACEPT
     Dosage: OTHER FREQUENCY:OTHER;?
     Route: 058
     Dates: start: 202001

REACTIONS (3)
  - Dry mouth [None]
  - Plicated tongue [None]
  - Tongue haemorrhage [None]

NARRATIVE: CASE EVENT DATE: 20200921
